FAERS Safety Report 6348252-5 (Version None)
Quarter: 2009Q3

REPORT INFORMATION
  Report Type: 
  Country: None (occurrence: None)
  Receive Date: 20090908
  Receipt Date: 20090828
  Transmission Date: 20100115
  Serious: Yes (Hospitalization)
  Sender: FDA-Public Use
  Company Number: 230025J09BRA

PATIENT
  Age: 44 Year
  Sex: Male

DRUGS (4)
  1. REBIF [Suspect]
     Indication: RELAPSING-REMITTING MULTIPLE SCLEROSIS
     Dosage: 22 MCG, 3 IN 1 WEEKS
     Dates: start: 20080516, end: 20090803
  2. AMITRIPTYLINE HYDROCHLORIDE [Concomitant]
  3. ALPRAZOLAM [Concomitant]
  4. ARADOIS (LOSARTAN POTASSIUM) (LOSARTAN POTASSIUM) [Concomitant]

REACTIONS (2)
  - MALAISE [None]
  - MULTIPLE SCLEROSIS RELAPSE [None]
